FAERS Safety Report 9772159 (Version 3)
Quarter: 2014Q1

REPORT INFORMATION
  Report Type: Spontaneous
  Country: US (occurrence: US)
  Receive Date: 20131219
  Receipt Date: 20140121
  Transmission Date: 20141002
  Serious: Yes (Hospitalization)
  Sender: FDA-Public Use
  Company Number: US-PERRIGO-13US012768

PATIENT
  Age: 84 Year
  Sex: Male
  Weight: 81.63 kg

DRUGS (5)
  1. MINOXIDIL AEROSOL 5% 294 [Suspect]
     Indication: ALOPECIA
     Dosage: 1/2 CAPFUL, 1 TO 2 TIMES DAILY, OFF AND ON
     Route: 061
     Dates: start: 201306, end: 201310
  2. OMEPRAZOLE [Concomitant]
     Indication: GASTRIC DISORDER
     Dosage: UNK
     Route: 048
     Dates: start: 2008
  3. ANTIHYPERTENSIVES [Concomitant]
     Indication: HYPERTENSION
     Dosage: UNK
     Route: 065
  4. ATORVASTATIN [Concomitant]
     Indication: BLOOD CHOLESTEROL INCREASED
     Dosage: UNK
     Route: 048
     Dates: start: 2010
  5. BAYER ASPIRIN [Concomitant]
     Indication: HYPERTENSION
     Dosage: 81 MG, UNK
     Route: 048
     Dates: start: 2008

REACTIONS (9)
  - Swelling [Recovering/Resolving]
  - Grip strength decreased [Not Recovered/Not Resolved]
  - Fluid retention [Recovered/Resolved]
  - Cardiac failure congestive [Unknown]
  - Arrhythmia [Recovered/Resolved]
  - Arthralgia [Not Recovered/Not Resolved]
  - Weight increased [Recovered/Resolved]
  - Heart rate increased [Recovered/Resolved]
  - Inappropriate schedule of drug administration [Recovered/Resolved]
